FAERS Safety Report 5807109-6 (Version None)
Quarter: 2008Q3

REPORT INFORMATION
  Report Type: 
  Country: None (occurrence: None)
  Receive Date: 20080709
  Receipt Date: 20080709
  Transmission Date: 20090109
  Serious: Yes (Disabling, Other)
  Sender: FDA-Public Use
  Company Number: None

PATIENT
  Age: 46 Year
  Sex: Male
  Weight: 90.2658 kg

DRUGS (2)
  1. FUROSEMIDE 40MG [Suspect]
     Indication: HYPERTENSION
     Dosage: TWICE DAILY PO
     Route: 048
     Dates: start: 20050412, end: 20061026
  2. TOROSEMIDE 20MG [Suspect]
     Dosage: ONCE DAILY PO
     Route: 048
     Dates: start: 20061026, end: 20080610

REACTIONS (8)
  - ARTHRALGIA [None]
  - BURNING SENSATION [None]
  - EMOTIONAL DISORDER [None]
  - GAIT DISTURBANCE [None]
  - HYPOAESTHESIA [None]
  - LETHARGY [None]
  - OEDEMA [None]
  - PAIN [None]
